FAERS Safety Report 7967009-2 (Version None)
Quarter: 2011Q4

REPORT INFORMATION
  Report Type: 
  Country: None (occurrence: None)
  Receive Date: 20111207
  Receipt Date: 20111207
  Transmission Date: 20120403
  Serious: Yes (Life-Threatening, Hospitalization)
  Sender: FDA-Public Use
  Company Number: None

PATIENT
  Age: 84 Year
  Sex: Male
  Weight: 63.6 kg

DRUGS (1)
  1. WARFARIN SODIUM [Suspect]
     Indication: PULMONARY EMBOLISM
     Dosage: 5MG 5 DAYS PER WEEK AND 7.5MG 2 DAYS PER WEEK MG EVERY DAY PO
     Route: 048
     Dates: start: 20110314, end: 20110512

REACTIONS (2)
  - ANAEMIA [None]
  - HAEMORRHAGE [None]
